FAERS Safety Report 8915294 (Version 2)
Quarter: 2013Q2

REPORT INFORMATION
  Report Type: Spontaneous
  Country: JP (occurrence: JP)
  Receive Date: 20121119
  Receipt Date: 20130425
  Transmission Date: 20140414
  Serious: Yes (Death, Other)
  Sender: FDA-Public Use
  Company Number: JP-ALEXION PHARMACEUTICALS INC.-A201202139

PATIENT
  Age: 53 Year
  Sex: Female

DRUGS (7)
  1. SOLIRIS 300MG [Suspect]
     Indication: PAROXYSMAL NOCTURNAL HAEMOGLOBINURIA
     Dosage: 900 MG, Q2W
     Route: 042
     Dates: start: 201012
  2. BLOOD AND RELATED PRODUCTS [Concomitant]
     Dosage: UNK
  3. PREDONINE [Concomitant]
     Dosage: 5-30 MG A DAY
     Dates: start: 19870603, end: 19881028
  4. NEORAL [Concomitant]
     Dosage: 150 MG, QD
     Dates: start: 20081117, end: 20101102
  5. AMLODIPINE [Concomitant]
     Dosage: 5 MG, QD
  6. TRANEXAMIC ACID [Concomitant]
     Dosage: 1500 MG, QD
     Dates: start: 20111112, end: 20121025
  7. EXJADE [Concomitant]
     Dosage: 500 MG, QD
     Dates: start: 20120705, end: 20121025

REACTIONS (4)
  - Hepatic cirrhosis [Fatal]
  - Cardiac failure acute [Unknown]
  - Drug ineffective [Unknown]
  - Renal impairment [Unknown]
